FAERS Safety Report 21754685 (Version 1)
Quarter: 2022Q4

REPORT INFORMATION
  Report Type: Spontaneous
  Country: KR (occurrence: KR)
  Receive Date: 20221220
  Receipt Date: 20221220
  Transmission Date: 20230113
  Serious: No
  Sender: FDA-Public Use
  Company Number: KR-PFIZER INC-202201382507

PATIENT
  Age: 75 Year

DRUGS (1)
  1. PAXLOVID [Suspect]
     Active Substance: NIRMATRELVIR\RITONAVIR
     Indication: COVID-19 treatment
     Dosage: 12 TABLETS TOGETHER
     Route: 048
     Dates: start: 20221218

REACTIONS (2)
  - Dysgeusia [Unknown]
  - Overdose [Unknown]

NARRATIVE: CASE EVENT DATE: 20221201
